FAERS Safety Report 8750241 (Version 2)
Quarter: 2012Q4

REPORT INFORMATION
  Report Type: Spontaneous
  Country: JP (occurrence: None)
  Receive Date: 20120809
  Receipt Date: 20120907
  Transmission Date: 20130627
  Serious: Yes (Other)
  Sender: FDA-Public Use
  Company Number: JP-2012-15939

PATIENT
  Age: 58 Year
  Sex: Male
  Weight: 62 kg

DRUGS (13)
  1. SAMSCA [Suspect]
     Indication: FLUID RETENTION
     Dosage: QAM
     Route: 048
     Dates: start: 20120524, end: 20120525
  2. HUMALOG [Concomitant]
  3. LANTUS [Concomitant]
  4. ASPIRIN [Concomitant]
  5. PLAVIX [Concomitant]
  6. RABEPRAZOLE SODIUM [Concomitant]
  7. ENALAPRIL MALEATE [Concomitant]
  8. CARVEDILOL [Concomitant]
  9. SIGMART (NICORANDIL) [Concomitant]
  10. CRESTOR (ROSUVASTAIN CALCIUM) [Concomitant]
  11. SELARA (EPLERENONE) [Concomitant]
  12. DOPAMINE HYDROCHLORIDE [Concomitant]
  13. LASIX (FUROSEMIDE) [Concomitant]

REACTIONS (1)
  - Blood pressure decreased [None]
